FAERS Safety Report 9516147 (Version 2)
Quarter: 2014Q2

REPORT INFORMATION
  Report Type: Report from Study
  Country: JP (occurrence: JP)
  Receive Date: 20130911
  Receipt Date: 20140523
  Transmission Date: 20141212
  Serious: Yes (Hospitalization)
  Sender: FDA-Public Use
  Company Number: JP-SHIRE-ALL1-2013-06156

PATIENT
  Age: 68 Year
  Sex: Female

DRUGS (12)
  1. 405 (LANTHANUM CARBONATE) [Suspect]
     Indication: HYPERPHOSPHATAEMIA
     Dosage: 1250 MG, UNKNOWN (PER DAY)
     Route: 048
     Dates: start: 20110922, end: 20130516
  2. 405 (LANTHANUM CARBONATE) [Suspect]
     Dosage: 750 MG, UNKNOWN (PER DAY)
     Route: 048
     Dates: start: 20090604, end: 20110720
  3. 405 (LANTHANUM CARBONATE) [Suspect]
     Dosage: 1500 MG, UNKNOWN (PER DAY)
     Route: 048
     Dates: start: 20110721, end: 20110921
  4. 405 (LANTHANUM CARBONATE) [Suspect]
     Dosage: 750 MG, UNKNOWN (PER DAY)
     Route: 048
     Dates: start: 20131008
  5. RENAGEL                            /01459902/ [Concomitant]
     Indication: HYPERPHOSPHATAEMIA
     Dosage: UNK, UNKNOWN
     Route: 048
  6. CALTAN [Concomitant]
     Indication: HYPERPHOSPHATAEMIA
     Dosage: 3.6 G, UNKNOWN
     Route: 048
     Dates: start: 199601
  7. OXAROL [Concomitant]
     Indication: PRODUCT USED FOR UNKNOWN INDICATION
     Dosage: 10 ?G, 1X/WEEK
     Route: 042
     Dates: start: 20070102
  8. REGPARA [Concomitant]
     Indication: HYPERPARATHYROIDISM SECONDARY
     Dosage: 50 MG, UNKNOWN
     Route: 048
     Dates: start: 20080320
  9. ALLORIN [Concomitant]
     Indication: PRODUCT USED FOR UNKNOWN INDICATION
     Dosage: 100 MG, UNKNOWN
     Route: 048
  10. OSTEN [Concomitant]
     Indication: PRODUCT USED FOR UNKNOWN INDICATION
     Dosage: 400 MG, UNKNOWN
     Route: 048
  11. GLAKAY [Concomitant]
     Indication: PRODUCT USED FOR UNKNOWN INDICATION
     Dosage: 30 MG, UNKNOWN
     Route: 048
  12. BLOPRESS [Concomitant]
     Indication: PRODUCT USED FOR UNKNOWN INDICATION
     Dosage: 4 MG, UNKNOWN
     Route: 048

REACTIONS (1)
  - Ankle fracture [Unknown]
